FAERS Safety Report 14205461 (Version 1)
Quarter: 2017Q4

REPORT INFORMATION
  Report Type: Spontaneous
  Country: US (occurrence: US)
  Receive Date: 20171120
  Receipt Date: 20171120
  Transmission Date: 20180321
  Serious: Yes (Death)
  Sender: FDA-Public Use
  Company Number: US-SA-2017SA224953

PATIENT
  Age: 14 Year
  Sex: Female

DRUGS (1)
  1. DIPHENHYDRAMINE. [Suspect]
     Active Substance: DIPHENHYDRAMINE
     Route: 065

REACTIONS (10)
  - Hypotension [Fatal]
  - Ventricular arrhythmia [Fatal]
  - Electrocardiogram QT prolonged [Fatal]
  - Metabolic acidosis [Fatal]
  - Exposure to toxic agent [Fatal]
  - Coma [Fatal]
  - Depressed level of consciousness [Fatal]
  - Anion gap increased [Fatal]
  - Seizure [Fatal]
  - Electrocardiogram QRS complex prolonged [Fatal]
